FAERS Safety Report 6408927-6 (Version None)
Quarter: 2009Q4

REPORT INFORMATION
  Report Type: 
  Country: None (occurrence: None)
  Receive Date: 20091021
  Receipt Date: 20091009
  Transmission Date: 20100525
  Serious: Yes (Hospitalization, Other)
  Sender: FDA-Public Use
  Company Number: FR-ELI_LILLY_AND_COMPANY-FR200909001963

PATIENT
  Age: 30 Year
  Sex: Male
  Weight: 76 kg

DRUGS (1)
  1. ZYPREXA [Suspect]
     Indication: BIPOLAR DISORDER
     Dosage: 15 MG, DAILY (1/D)
     Route: 048
     Dates: start: 20071020, end: 20090507

REACTIONS (2)
  - PULMONARY EMBOLISM [None]
  - WEIGHT INCREASED [None]
